FAERS Safety Report 8936487 (Version 1)
Quarter: 2012Q4

REPORT INFORMATION
  Report Type: 
  Country: FR (occurrence: FR)
  Receive Date: 20121130
  Receipt Date: 20121130
  Transmission Date: 20130627
  Serious: Yes (Hospitalization)
  Sender: FDA-Public Use
  Company Number: FR-B.I. PHARMACEUTICALS,INC./RIDGEFIELD-2012-FF-01756FF

PATIENT
  Age: 83 Year
  Sex: Female

DRUGS (5)
  1. MICARDIS [Suspect]
     Dosage: 80 mg
     Route: 048
     Dates: end: 20120831
  2. LASILIX [Suspect]
     Dosage: 80 mg
     Route: 048
     Dates: end: 20120831
  3. ALDACTONE [Suspect]
     Dosage: 25 mg
     Route: 048
     Dates: end: 20120831
  4. DEROXAT [Suspect]
     Dosage: 10 mg
     Route: 048
     Dates: end: 20120831
  5. DIAMICRON [Suspect]
     Dosage: 120 mg
     Dates: end: 20120831

REACTIONS (3)
  - Fall [Recovered/Resolved]
  - Hypoglycaemia [Recovered/Resolved]
  - Orthostatic hypotension [Recovered/Resolved]
